FAERS Safety Report 9397458 (Version 2)
Quarter: 2013Q3

REPORT INFORMATION
  Report Type: Spontaneous
  Country: US (occurrence: US)
  Receive Date: 20130712
  Receipt Date: 20130807
  Transmission Date: 20140515
  Serious: Yes (Hospitalization)
  Sender: FDA-Public Use
  Company Number: US-PFIZER INC-2013204027

PATIENT
  Age: 30 Year
  Sex: Male

DRUGS (8)
  1. INLYTA [Suspect]
     Indication: RENAL CELL CARCINOMA
     Dosage: 7 MG, 2X/DAY
     Route: 048
     Dates: start: 201305, end: 20130613
  2. INLYTA [Suspect]
     Dosage: 5 MG, 2X/DAY
  3. METOPROLOL [Concomitant]
     Dosage: UNK
  4. MS CONTIN [Concomitant]
     Dosage: UNK
  5. NEXIUM [Concomitant]
     Dosage: UNK
  6. ONDANSETRON [Concomitant]
     Dosage: UNK
  7. PAXIL [Concomitant]
     Dosage: UNK
  8. PREDNISONE [Concomitant]
     Dosage: UNK

REACTIONS (4)
  - Nausea [Recovered/Resolved]
  - Vomiting [Recovered/Resolved]
  - Brain oedema [Unknown]
  - Headache [Recovered/Resolved]
